FAERS Safety Report 11010275 (Version 1)
Quarter: 2015Q2

REPORT INFORMATION
  Report Type: Spontaneous
  Country: DE (occurrence: DE)
  Receive Date: 20150410
  Receipt Date: 20150410
  Transmission Date: 20150821
  Serious: Yes (Other)
  Sender: FDA-Public Use
  Company Number: DE-ACTAVIS-2015-07178

PATIENT
  Age: 70 Year
  Sex: Female

DRUGS (2)
  1. PAMIDRONIC ACID [Suspect]
     Active Substance: PAMIDRONIC ACID
     Indication: BREAST CANCER
     Dosage: 90 MG, CYCLICAL, EVERY 3 MONTHS
     Route: 042
  2. ZOLEDRONIC ACID (UNKNOWN) [Suspect]
     Active Substance: ZOLEDRONIC ACID
     Indication: BREAST CANCER
     Dosage: 4 MG, EVERY 3 MONTHS
     Route: 042

REACTIONS (1)
  - Osteonecrosis [Recovered/Resolved]
